FAERS Safety Report 15662591 (Version 1)
Quarter: 2018Q4

REPORT INFORMATION
  Report Type: Report from Study
  Country: None (occurrence: US)
  Receive Date: 20181127
  Receipt Date: 20181127
  Transmission Date: 20190205
  Serious: Yes (Other)
  Sender: FDA-Public Use
  Company Number: US-ABBVIE-18S-163-2563486-00

PATIENT
  Age: 54 Year
  Sex: Male

DRUGS (1)
  1. CREON [Suspect]
     Active Substance: PANCRELIPASE AMYLASE\PANCRELIPASE LIPASE\PANCRELIPASE PROTEASE
     Indication: PRODUCT USED FOR UNKNOWN INDICATION
     Route: 065

REACTIONS (11)
  - Leukodystrophy [Unknown]
  - Gilbert^s syndrome [Unknown]
  - Cerebrovascular disorder [Unknown]
  - Pancreatitis chronic [Unknown]
  - Gastrooesophageal reflux disease [Unknown]
  - Ataxia [Unknown]
  - Oesophagitis [Unknown]
  - Muscular weakness [Unknown]
  - Dysarthria [Unknown]
  - Cognitive disorder [Unknown]
  - White matter lesion [Unknown]

NARRATIVE: CASE EVENT DATE: 201511
